FAERS Safety Report 22648760 (Version 1)
Quarter: 2023Q2

REPORT INFORMATION
  Report Type: Spontaneous
  Country: US (occurrence: None)
  Receive Date: 20230628
  Receipt Date: 20230628
  Transmission Date: 20230722
  Serious: No
  Sender: FDA-Public Use
  Company Number: US-USWM, LLC-UWM202303-000005

PATIENT
  Sex: Male

DRUGS (2)
  1. LUCEMYRA [Suspect]
     Active Substance: LOFEXIDINE
     Indication: Product used for unknown indication
     Dosage: NOT PROVIDED
  2. TRAZODONE [Suspect]
     Active Substance: TRAZODONE HYDROCHLORIDE
     Indication: Product used for unknown indication
     Dosage: NOT PROVIDED

REACTIONS (1)
  - Priapism [Unknown]
